FAERS Safety Report 14923532 (Version 1)
Quarter: 2018Q2

REPORT INFORMATION
  Report Type: Spontaneous
  Country: GB (occurrence: GB)
  Receive Date: 20180522
  Receipt Date: 20180522
  Transmission Date: 20180711
  Serious: Yes (Other)
  Sender: FDA-Public Use
  Company Number: GB-PFIZER INC-2018200432

PATIENT
  Age: 70 Year
  Sex: Female
  Weight: 67.58 kg

DRUGS (1)
  1. AMLODIPINE BESILATE [Suspect]
     Active Substance: AMLODIPINE BESYLATE
     Indication: HYPERTENSION
     Dosage: 10 MG, UNK
     Route: 048
     Dates: start: 20180110

REACTIONS (8)
  - Depression [Unknown]
  - Mood altered [Unknown]
  - Somnolence [Unknown]
  - Listless [Unknown]
  - Dry mouth [Unknown]
  - Lethargy [Unknown]
  - Pruritus [Unknown]
  - Personality change [Unknown]

NARRATIVE: CASE EVENT DATE: 20180115
